FAERS Safety Report 16399469 (Version 2)
Quarter: 2019Q2

REPORT INFORMATION
  Report Type: Spontaneous
  Country: IR (occurrence: IR)
  Receive Date: 20190606
  Receipt Date: 20190619
  Transmission Date: 20190711
  Serious: Yes (Other)
  Sender: FDA-Public Use
  Company Number: IR-BIOGEN-2019BI00746506

PATIENT
  Age: 35 Year
  Sex: Female

DRUGS (4)
  1. CINNOVEX [Suspect]
     Active Substance: INTERFERON BETA-1A
     Indication: RELAPSING MULTIPLE SCLEROSIS
     Route: 065
  2. AVONEX [Suspect]
     Active Substance: INTERFERON BETA-1A
     Indication: RELAPSING MULTIPLE SCLEROSIS
     Route: 065
  3. AVONEX [Suspect]
     Active Substance: INTERFERON BETA-1A
     Dosage: RESTART AFTER TWO YEARS
     Route: 065
  4. CINNOVEX [Suspect]
     Active Substance: INTERFERON BETA-1A
     Dosage: RESTART AFTER TWO YEARS
     Route: 065

REACTIONS (1)
  - Myelodysplastic syndrome [Recovered/Resolved]
